FAERS Safety Report 12720065 (Version 1)
Quarter: 2016Q3

REPORT INFORMATION
  Report Type: Spontaneous
  Country: GB (occurrence: GB)
  Receive Date: 20160907
  Receipt Date: 20160907
  Transmission Date: 20161109
  Serious: Yes (Hospitalization, Other)
  Sender: FDA-Public Use
  Company Number: GB-VIIV HEALTHCARE LIMITED-GB2016GSK128525

PATIENT
  Sex: Male

DRUGS (5)
  1. NORVIR [Suspect]
     Active Substance: RITONAVIR
     Dosage: 100 MG, UNK
  2. CELSENTRI [Suspect]
     Active Substance: MARAVIROC
  3. COTRIMOXAZOLE [Suspect]
     Active Substance: SULFAMETHOXAZOLE\TRIMETHOPRIM
  4. DOLUTEGRAVIR [Suspect]
     Active Substance: DOLUTEGRAVIR
  5. PREZISTA [Suspect]
     Active Substance: DARUNAVIR ETHANOLATE
     Dosage: 800 MG, UNK

REACTIONS (1)
  - Neoplasm malignant [Unknown]
